FAERS Safety Report 20303401 (Version 2)
Quarter: 2022Q1

REPORT INFORMATION
  Report Type: Spontaneous
  Country: US (occurrence: US)
  Receive Date: 20220106
  Receipt Date: 20220112
  Transmission Date: 20220423
  Serious: No
  Sender: FDA-Public Use
  Company Number: US-AMGEN-USASP2022000693

PATIENT
  Age: 81 Year
  Sex: Female

DRUGS (31)
  1. OTEZLA [Suspect]
     Active Substance: APREMILAST
     Indication: Psoriasis
     Dosage: 30 MILLIGRAM, BID
     Route: 048
  2. TYLENOL ARTHRITIS PAIN [Concomitant]
     Active Substance: ACETAMINOPHEN
  3. MINERALS\VITAMINS [Concomitant]
     Active Substance: MINERALS\VITAMINS
  4. LUBRICATING PLUS [Concomitant]
     Active Substance: CARBOXYMETHYLCELLULOSE SODIUM
  5. OCEAN NASAL [Concomitant]
  6. BIFIDOBACTERIUM ANIMALIS LACTIS [Concomitant]
     Active Substance: BIFIDOBACTERIUM ANIMALIS LACTIS
  7. CHOLECALCIFEROL [Concomitant]
     Active Substance: CHOLECALCIFEROL
  8. HYDROCORTISONE [Concomitant]
     Active Substance: HYDROCORTISONE
     Dosage: 2.5 %
     Route: 054
  9. FLUCONAZOLE [Concomitant]
     Active Substance: FLUCONAZOLE
  10. BUDESONIDE [Concomitant]
     Active Substance: BUDESONIDE
     Dosage: 0.5 MG/ 2 ML VIAL
  11. IPRATROPIUM [Concomitant]
     Active Substance: IPRATROPIUM
     Dosage: 0.5/ 3 MG VIALS
  12. TOUJEO MAX [Concomitant]
     Active Substance: INSULIN GLARGINE
  13. ESOMEPRAZOLE [Concomitant]
     Active Substance: ESOMEPRAZOLE
  14. TACLONEX [Concomitant]
     Active Substance: BETAMETHASONE DIPROPIONATE\CALCIPOTRIENE\CALCIPOTRIENE HYDRATE
  15. GABAPENTIN [Concomitant]
     Active Substance: GABAPENTIN
  16. DULOXETINE [Concomitant]
     Active Substance: DULOXETINE
  17. ALLOPURINOL [Concomitant]
     Active Substance: ALLOPURINOL
  18. LOSARTAN [Concomitant]
     Active Substance: LOSARTAN
  19. DICLOFENAC [Concomitant]
     Active Substance: DICLOFENAC
     Dosage: 1 %
  20. TRAMADOL [Concomitant]
     Active Substance: TRAMADOL
  21. BUPROPION [Concomitant]
     Active Substance: BUPROPION
  22. LEVOTHYROXINE [Concomitant]
     Active Substance: LEVOTHYROXINE
  23. VASCEPA [Concomitant]
     Active Substance: ICOSAPENT ETHYL
  24. SIMVASTATIN [Concomitant]
     Active Substance: SIMVASTATIN
  25. ELIQUIS [Concomitant]
     Active Substance: APIXABAN
  26. CARVEDILOL [Concomitant]
     Active Substance: CARVEDILOL
  27. MYRBETRIQ [Concomitant]
     Active Substance: MIRABEGRON
  28. BUMETANIDE [Concomitant]
     Active Substance: BUMETANIDE
  29. METOLAZONE [Concomitant]
     Active Substance: METOLAZONE
  30. DOCUSATE [Concomitant]
     Active Substance: DOCUSATE
  31. HUMALOG [Concomitant]
     Active Substance: INSULIN LISPRO

REACTIONS (1)
  - Depression [Not Recovered/Not Resolved]
